FAERS Safety Report 9285988 (Version 1)
Quarter: 2013Q2

REPORT INFORMATION
  Report Type: Spontaneous
  Country: NL (occurrence: NL)
  Receive Date: 20130513
  Receipt Date: 20130513
  Transmission Date: 20140414
  Serious: Yes (Hospitalization)
  Sender: FDA-Public Use
  Company Number: NL-ASTRAZENECA-2013SE30939

PATIENT
  Age: 24721 Day
  Sex: Male

DRUGS (1)
  1. OMEPRAZOL [Suspect]
     Indication: ABDOMINAL DISCOMFORT
     Route: 048
     Dates: start: 20110209, end: 20130128

REACTIONS (1)
  - Hypomagnesaemia [Recovered/Resolved]
